FAERS Safety Report 15378359 (Version 3)
Quarter: 2018Q4

REPORT INFORMATION
  Report Type: Report from Study
  Country: BE (occurrence: BE)
  Receive Date: 20180913
  Receipt Date: 20181005
  Transmission Date: 20190204
  Serious: Yes (Death, Other)
  Sender: FDA-Public Use
  Company Number: BE-BEH-2018094816

PATIENT
  Age: 26 Year
  Sex: Female

DRUGS (1)
  1. HIZENTRA [Suspect]
     Active Substance: HUMAN IMMUNOGLOBULIN G
     Indication: IMMUNODEFICIENCY
     Dosage: 10 G, QW; INFUSION RATE: 25 ML/HOUR
     Route: 058
     Dates: start: 20180711

REACTIONS (6)
  - Cytomegalovirus infection [Unknown]
  - Lung infection [Unknown]
  - Gastrointestinal infection [Unknown]
  - Injection site infection [Unknown]
  - Diarrhoea [Unknown]
  - Septic shock [Fatal]

NARRATIVE: CASE EVENT DATE: 20180830
